FAERS Safety Report 25254967 (Version 1)
Quarter: 2025Q2

REPORT INFORMATION
  Report Type: Spontaneous
  Country: ES (occurrence: ES)
  Receive Date: 20250430
  Receipt Date: 20250430
  Transmission Date: 20250717
  Serious: Yes (Hospitalization)
  Sender: SANDOZ
  Company Number: ES-009507513-2272048

PATIENT
  Sex: Male

DRUGS (30)
  1. CARBOPLATIN [Suspect]
     Active Substance: CARBOPLATIN
     Indication: Non-small cell lung cancer metastatic
     Dosage: 608.2 MG, QD
     Route: 042
     Dates: start: 20240410, end: 20240410
  2. CARBOPLATIN [Suspect]
     Active Substance: CARBOPLATIN
     Dosage: 608.2 MG, QD
     Route: 042
     Dates: start: 20240430, end: 20240430
  3. CARBOPLATIN [Suspect]
     Active Substance: CARBOPLATIN
     Dosage: 608.2 MG, QD
     Route: 042
     Dates: start: 20240529, end: 20240529
  4. CARBOPLATIN [Suspect]
     Active Substance: CARBOPLATIN
     Dosage: 608.2 MG, QD
     Route: 042
     Dates: start: 20240619, end: 20240619
  5. PEMETREXED [Suspect]
     Active Substance: PEMETREXED
     Indication: Non-small cell lung cancer metastatic
     Dosage: 950 MG, QD
     Route: 042
     Dates: start: 20240410, end: 20240410
  6. PEMETREXED [Suspect]
     Active Substance: PEMETREXED
     Dosage: 950 MG, QD
     Route: 042
     Dates: start: 20240430, end: 20240430
  7. PEMETREXED [Suspect]
     Active Substance: PEMETREXED
     Dosage: 950 MG, QD
     Route: 042
     Dates: start: 20240529, end: 20240529
  8. PEMETREXED [Suspect]
     Active Substance: PEMETREXED
     Dosage: 950 MG, QD
     Route: 042
     Dates: start: 20240619, end: 20240619
  9. PEMETREXED [Suspect]
     Active Substance: PEMETREXED
     Dosage: 950 MG, QD
     Route: 042
     Dates: start: 20240801, end: 20240801
  10. PEMETREXED [Suspect]
     Active Substance: PEMETREXED
     Dosage: 950 MG, QD
     Route: 042
     Dates: start: 20240820, end: 20240820
  11. PEMBROLIZUMAB [Suspect]
     Active Substance: PEMBROLIZUMAB
     Indication: Non-small cell lung cancer metastatic
     Dosage: 200 MG, QD
     Route: 042
     Dates: start: 20240410, end: 20240410
  12. PEMBROLIZUMAB [Suspect]
     Active Substance: PEMBROLIZUMAB
     Dosage: 200 MG, QD
     Route: 042
     Dates: start: 20240430, end: 20240430
  13. PEMBROLIZUMAB [Suspect]
     Active Substance: PEMBROLIZUMAB
     Dosage: 200 MG, QD
     Route: 042
     Dates: start: 20240529, end: 20240529
  14. PEMBROLIZUMAB [Suspect]
     Active Substance: PEMBROLIZUMAB
     Dosage: 200 MG, QD
     Route: 042
     Dates: start: 20240619, end: 20240619
  15. PEMBROLIZUMAB [Suspect]
     Active Substance: PEMBROLIZUMAB
     Dosage: 200 MG, QD
     Route: 042
     Dates: start: 20240710, end: 20240710
  16. PEMBROLIZUMAB [Suspect]
     Active Substance: PEMBROLIZUMAB
     Dosage: 200 MG, QD
     Route: 042
     Dates: start: 20240801, end: 20240801
  17. PEMBROLIZUMAB [Suspect]
     Active Substance: PEMBROLIZUMAB
     Dosage: 200 MG, QD
     Route: 042
     Dates: start: 20240820, end: 20240820
  18. FOLIC ACID [Concomitant]
     Active Substance: FOLIC ACID
     Indication: Product used for unknown indication
     Route: 065
     Dates: start: 20240403
  19. AMLODIPINE BESYLATE\VALSARTAN [Concomitant]
     Active Substance: AMLODIPINE BESYLATE\VALSARTAN
     Indication: Product used for unknown indication
     Route: 065
     Dates: start: 2018
  20. AMOXICILLIN\CLAVULANATE POTASSIUM [Concomitant]
     Active Substance: AMOXICILLIN\CLAVULANATE POTASSIUM
     Indication: Product used for unknown indication
     Route: 065
     Dates: start: 20240828, end: 20240902
  21. CIPROFLOXACIN [Concomitant]
     Active Substance: CIPROFLOXACIN
     Indication: Product used for unknown indication
     Route: 065
     Dates: start: 20240828
  22. DEXAMETHASONE [Concomitant]
     Active Substance: DEXAMETHASONE
     Indication: Product used for unknown indication
     Route: 065
     Dates: start: 20240522
  23. GRANISETRON [Concomitant]
     Active Substance: GRANISETRON
     Indication: Product used for unknown indication
     Route: 065
     Dates: start: 20240801, end: 20240820
  24. IPRATROPIUM [Concomitant]
     Active Substance: IPRATROPIUM
     Indication: Product used for unknown indication
     Route: 065
     Dates: start: 20240903, end: 20240910
  25. LINAGLIPTIN\METFORMIN HYDROCHLORIDE [Concomitant]
     Active Substance: LINAGLIPTIN\METFORMIN HYDROCHLORIDE
     Indication: Product used for unknown indication
     Route: 065
     Dates: start: 2014
  26. METHYLPREDNISOLONE [Concomitant]
     Active Substance: METHYLPREDNISOLONE
     Indication: Product used for unknown indication
     Route: 065
     Dates: start: 20240903, end: 20240910
  27. OMEPRAZOLE [Concomitant]
     Active Substance: OMEPRAZOLE
     Indication: Product used for unknown indication
     Route: 065
     Dates: start: 20240903, end: 20240903
  28. CYANOCOBALAMIN [Concomitant]
     Active Substance: CYANOCOBALAMIN
     Indication: Product used for unknown indication
     Route: 065
     Dates: start: 20240403
  29. ACETAMINOPHEN [Concomitant]
     Active Substance: ACETAMINOPHEN
     Indication: Product used for unknown indication
     Route: 065
     Dates: start: 20240321
  30. TORSEMIDE [Concomitant]
     Active Substance: TORSEMIDE
     Indication: Product used for unknown indication
     Route: 065
     Dates: start: 2018

REACTIONS (6)
  - Pneumonitis [Recovering/Resolving]
  - Febrile neutropenia [Unknown]
  - Inappropriate schedule of product administration [Unknown]
  - Inappropriate schedule of product administration [Unknown]
  - Inappropriate schedule of product administration [Unknown]
  - Inappropriate schedule of product administration [Unknown]

NARRATIVE: CASE EVENT DATE: 20240430
